FAERS Safety Report 16895942 (Version 1)
Quarter: 2019Q4

REPORT INFORMATION
  Report Type: Spontaneous
  Country: US (occurrence: US)
  Receive Date: 20191008
  Receipt Date: 20191008
  Transmission Date: 20200122
  Serious: No
  Sender: FDA-Public Use
  Company Number: US-PERRIGO-19US000168

PATIENT
  Sex: Male

DRUGS (1)
  1. IMIQUIMOD. [Suspect]
     Active Substance: IMIQUIMOD
     Indication: PRODUCT USED FOR UNKNOWN INDICATION
     Dosage: UNKNOWN, UNKNOWN
     Route: 061
     Dates: start: 20191228

REACTIONS (2)
  - Application site erythema [Not Recovered/Not Resolved]
  - Application site dryness [Not Recovered/Not Resolved]

NARRATIVE: CASE EVENT DATE: 201901
